FAERS Safety Report 5866484-7 (Version None)
Quarter: 2008Q3

REPORT INFORMATION
  Report Type: 
  Country: None (occurrence: None)
  Receive Date: 20080902
  Receipt Date: 20080902
  Transmission Date: 20090109
  Serious: Yes (Hospitalization)
  Sender: FDA-Public Use
  Company Number: PHEH1995US03638

PATIENT
  Sex: Male
  Weight: 60 kg

DRUGS (4)
  1. NEORAL [Suspect]
     Route: 048
     Dates: start: 19950521
  2. GANCICLOVIR [Concomitant]
  3. NYSTATIN [Concomitant]
  4. RANITIDINE [Concomitant]

REACTIONS (3)
  - ABDOMINAL PAIN UPPER [None]
  - ABSCESS [None]
  - WHITE BLOOD CELL COUNT DECREASED [None]
